FAERS Safety Report 13516900 (Version 1)
Quarter: 2017Q2

REPORT INFORMATION
  Report Type: Spontaneous
  Country: US (occurrence: US)
  Receive Date: 20170505
  Receipt Date: 20170505
  Transmission Date: 20170830
  Serious: No
  Sender: FDA-Public Use
  Company Number: US-PFIZER INC-2017190689

PATIENT
  Age: 54 Year
  Sex: Female
  Weight: 76.19 kg

DRUGS (4)
  1. PERCOCET [Concomitant]
     Active Substance: ACETAMINOPHEN\OXYCODONE HYDROCHLORIDE
     Indication: PAIN
     Dosage: UNK
  2. THYROID [Concomitant]
     Active Substance: LEVOTHYROXINE\LIOTHYRONINE
     Indication: THYROID DISORDER
     Dosage: UNK
  3. METAXALONE. [Suspect]
     Active Substance: METAXALONE
     Indication: NECK SURGERY
     Dosage: 800 MG, 1X/DAY
     Dates: start: 20170418, end: 20170426
  4. PROGESTERONE. [Concomitant]
     Active Substance: PROGESTERONE
     Indication: NUTRITIONAL SUPPLEMENTATION
     Dosage: UNK

REACTIONS (1)
  - Urticaria [Not Recovered/Not Resolved]

NARRATIVE: CASE EVENT DATE: 20170426
